FAERS Safety Report 8481142-0 (Version None)
Quarter: 2012Q2

REPORT INFORMATION
  Report Type: 
  Country: None (occurrence: None)
  Receive Date: 20120619
  Receipt Date: 20120612
  Transmission Date: 20120825
  Serious: Yes (Hospitalization, Other)
  Sender: FDA-Public Use
  Company Number: DSA_55868_2012

PATIENT
  Sex: Male
  Weight: 78.5 kg

DRUGS (3)
  1. XENAZINE [Suspect]
     Indication: CHOREA
     Dosage: (12.5 MG TID ORAL), (12.5 MG TID ORAL)
     Route: 048
     Dates: start: 20100510, end: 20120201
  2. XENAZINE [Suspect]
     Indication: CHOREA
     Dosage: (12.5 MG TID ORAL), (12.5 MG TID ORAL)
     Route: 048
     Dates: start: 20120221
  3. CORTICOSTEROID NOS [Suspect]
     Indication: PRODUCT USED FOR UNKNOWN INDICATION
     Dosage: (DF)

REACTIONS (2)
  - HIP ARTHROPLASTY [None]
  - OSTEONECROSIS [None]
